FAERS Safety Report 4531245-8 (Version None)
Quarter: 2004Q4

REPORT INFORMATION
  Report Type: 
  Country: None (occurrence: None)
  Receive Date: 20041216
  Receipt Date: 20041208
  Transmission Date: 20050328
  Serious: Yes (Disabling)
  Sender: FDA-Public Use
  Company Number: ZONI002075

PATIENT
  Age: 13 Year
  Sex: Female

DRUGS (3)
  1. EXCEGRAN (ZONISAMIDE) [Suspect]
     Indication: POST-TRAUMATIC EPILEPSY
     Dosage: 100 MG, 2 IN 1 D, ORAL; D, ORAL
     Route: 048
     Dates: start: 20041025, end: 20041118
  2. EXCEGRAN (ZONISAMIDE) [Suspect]
     Indication: POST-TRAUMATIC EPILEPSY
     Dosage: 100 MG, 2 IN 1 D, ORAL; D, ORAL
     Route: 048
     Dates: start: 20041119, end: 20041201
  3. TEGRETORL (CARBAMAZEPINE) [Concomitant]

REACTIONS (2)
  - LENTICULAR OPACITIES [None]
  - PHOTOPHOBIA [None]
